FAERS Safety Report 7493398-1 (Version None)
Quarter: 2011Q2

REPORT INFORMATION
  Report Type: 
  Country: None (occurrence: None)
  Receive Date: 20110520
  Receipt Date: 20110513
  Transmission Date: 20111010
  Serious: Yes (Other)
  Sender: FDA-Public Use
  Company Number: FR-PFIZER INC-2010076270

PATIENT
  Sex: Female
  Weight: 78 kg

DRUGS (1)
  1. EXEMESTANE [Suspect]
     Indication: BREAST CANCER
     Dosage: UNK
     Dates: start: 20090206

REACTIONS (2)
  - MUSCULOSKELETAL DISORDER [None]
  - OSTEOPENIA [None]
